FAERS Safety Report 6869048-1 (Version None)
Quarter: 2010Q3

REPORT INFORMATION
  Report Type: 
  Country: None (occurrence: None)
  Receive Date: 20100722
  Receipt Date: 20080623
  Transmission Date: 20110219
  Serious: Yes (Other)
  Sender: FDA-Public Use
  Company Number: US-PFIZER INC-2008054424

PATIENT
  Sex: Female
  Weight: 53.636 kg

DRUGS (4)
  1. CHANTIX [Suspect]
     Indication: EX-TOBACCO USER
     Dosage: NA EVERY NA DAYS
     Route: 048
     Dates: start: 20080501
  2. KLONOPIN [Concomitant]
  3. SKELAXIN [Concomitant]
  4. TRAMADOL [Concomitant]

REACTIONS (1)
  - SUICIDAL BEHAVIOUR [None]
